FAERS Safety Report 16141674 (Version 1)
Quarter: 2019Q2

REPORT INFORMATION
  Report Type: Spontaneous
  Country: US (occurrence: US)
  Receive Date: 20190401
  Receipt Date: 20190401
  Transmission Date: 20190711
  Serious: No
  Sender: FDA-Public Use
  Company Number: US-AMGEN-USASP2019048074

PATIENT

DRUGS (1)
  1. PROLIA [Suspect]
     Active Substance: DENOSUMAB
     Indication: PRODUCT USED FOR UNKNOWN INDICATION
     Dosage: UNK
     Route: 065

REACTIONS (9)
  - Endodontic procedure [Unknown]
  - Back pain [Unknown]
  - Pain in extremity [Unknown]
  - Adverse event [Unknown]
  - Skin lesion [Unknown]
  - Nausea [Unknown]
  - Vision blurred [Unknown]
  - Cardiac disorder [Unknown]
  - Hypertension [Unknown]
